FAERS Safety Report 7900035-8 (Version None)
Quarter: 2011Q4

REPORT INFORMATION
  Report Type: 
  Country: None (occurrence: None)
  Receive Date: 20111108
  Receipt Date: 20111028
  Transmission Date: 20120403
  Serious: Yes (Hospitalization, Other)
  Sender: FDA-Public Use
  Company Number: DE-BIOGENIDEC-2011BI028437

PATIENT
  Age: 49 Year
  Sex: Male

DRUGS (17)
  1. TYSABRI [Suspect]
     Route: 042
     Dates: start: 20071218, end: 20091222
  2. TYSABRI [Suspect]
     Route: 042
     Dates: start: 20071218, end: 20091222
  3. TYSABRI [Suspect]
     Route: 042
     Dates: start: 20071218, end: 20091222
  4. TYSABRI [Suspect]
     Route: 042
     Dates: start: 20071218, end: 20091222
  5. TYSABRI [Suspect]
     Route: 042
     Dates: start: 20071218, end: 20091222
  6. TYSABRI [Suspect]
     Indication: RELAPSING-REMITTING MULTIPLE SCLEROSIS
     Route: 042
     Dates: start: 20071218, end: 20091222
  7. TYSABRI [Suspect]
     Route: 042
     Dates: start: 20071218, end: 20091222
  8. TYSABRI [Suspect]
     Route: 042
     Dates: start: 20071218, end: 20091222
  9. TYSABRI [Suspect]
     Route: 042
     Dates: start: 20071218, end: 20091222
  10. TYSABRI [Suspect]
     Route: 042
     Dates: start: 20071218, end: 20091222
  11. TYSABRI [Suspect]
     Route: 042
     Dates: start: 20071218, end: 20091222
  12. TYSABRI [Suspect]
     Route: 042
     Dates: start: 20071218, end: 20091222
  13. TYSABRI [Suspect]
     Route: 042
     Dates: start: 20071218, end: 20091222
  14. TYSABRI [Suspect]
     Route: 042
     Dates: start: 20071218, end: 20091222
  15. TYSABRI [Suspect]
     Route: 042
     Dates: start: 20071218, end: 20091222
  16. TYSABRI [Suspect]
     Route: 042
     Dates: start: 20071218, end: 20091222
  17. COPAXONE [Concomitant]
     Dates: start: 20100101

REACTIONS (1)
  - PROSTATE CANCER [None]
